FAERS Safety Report 7820913-8 (Version None)
Quarter: 2011Q4

REPORT INFORMATION
  Report Type: 
  Country: None (occurrence: None)
  Receive Date: 20111018
  Receipt Date: 20111011
  Transmission Date: 20120403
  Serious: Yes (Other)
  Sender: FDA-Public Use
  Company Number: US-GLAXOSMITHKLINE-A0949047A

PATIENT
  Age: 64 Year
  Sex: Male

DRUGS (2)
  1. IMMUNE GLOBULIN INTRAVENOUS (HUMAN) [Concomitant]
     Indication: IDIOPATHIC THROMBOCYTOPENIC PURPURA
  2. PROMACTA [Suspect]
     Indication: IDIOPATHIC THROMBOCYTOPENIC PURPURA
     Dosage: 50MG ALTERNATE DAYS
     Dates: start: 20110101, end: 20110621

REACTIONS (4)
  - SOMNOLENCE [None]
  - FEELING ABNORMAL [None]
  - DRUG INEFFECTIVE [None]
  - FATIGUE [None]
